FAERS Safety Report 19097540 (Version 1)
Quarter: 2021Q2

REPORT INFORMATION
  Report Type: Spontaneous
  Country: US (occurrence: US)
  Receive Date: 20210406
  Receipt Date: 20210406
  Transmission Date: 20210717
  Serious: Yes (Other)
  Sender: FDA-Public Use
  Company Number: None

PATIENT
  Age: 79 Year
  Sex: Female
  Weight: 72.57 kg

DRUGS (17)
  1. PHILLIPS COLON HEALTH [Concomitant]
  2. LEVOTHYROXINE. [Concomitant]
     Active Substance: LEVOTHYROXINE
  3. AMYLOPIDINE [Concomitant]
  4. ROSUVASTATIN. [Concomitant]
     Active Substance: ROSUVASTATIN
  5. MECLIZINE [Concomitant]
     Active Substance: MECLIZINE HYDROCHLORIDE
  6. LISINOPRIL. [Concomitant]
     Active Substance: LISINOPRIL
  7. DICYCLOMINE [Concomitant]
     Active Substance: DICYCLOMINE HYDROCHLORIDE
  8. ELIQUIS [Suspect]
     Active Substance: APIXABAN
     Indication: CARDIAC ASSISTANCE DEVICE USER
  9. ELIQUIS [Suspect]
     Active Substance: APIXABAN
     Indication: ATRIAL FIBRILLATION
  10. VIT D [Concomitant]
     Active Substance: VITAMIN D NOS
  11. ASA [Concomitant]
     Active Substance: ASPIRIN
  12. BREO ELLIPTA [Concomitant]
     Active Substance: FLUTICASONE FUROATE\VILANTEROL TRIFENATATE
  13. MONTELUKAST [Concomitant]
     Active Substance: MONTELUKAST SODIUM
  14. PROAIR HFA [Concomitant]
     Active Substance: ALBUTEROL SULFATE
  15. ELIQUIS [Suspect]
     Active Substance: APIXABAN
     Indication: CARDIAC ABLATION
     Dosage: ?          QUANTITY:1 DF DOSAGE FORM;?
     Route: 048
     Dates: start: 20210217, end: 20210220
  16. ELIQUIS [Suspect]
     Active Substance: APIXABAN
     Indication: SUPRAVENTRICULAR TACHYCARDIA
  17. ONADANSETRON [Concomitant]

REACTIONS (5)
  - Blister [None]
  - Pruritus [None]
  - Erythema [None]
  - Sensitive skin [None]
  - Skin exfoliation [None]
